FAERS Safety Report 20767261 (Version 1)
Quarter: 2022Q2

REPORT INFORMATION
  Report Type: Other
  Country: CA (occurrence: CA)
  Receive Date: 20220429
  Receipt Date: 20220429
  Transmission Date: 20220721
  Serious: Yes (Other)
  Sender: FDA-Public Use
  Company Number: CA-ASPEN-GLO2022CA002224

PATIENT

DRUGS (9)
  1. BUSULFAN [Suspect]
     Active Substance: BUSULFAN
     Indication: Combined immunodeficiency
     Dosage: UNK (INJECTION)
     Route: 065
  2. BUSULFAN [Suspect]
     Active Substance: BUSULFAN
     Indication: Bone marrow conditioning regimen
     Dosage: UNK (INJECTION)
     Route: 065
  3. BUSULFAN [Suspect]
     Active Substance: BUSULFAN
     Indication: Allogenic stem cell transplantation
     Dosage: 0.8 MG/KG
     Route: 065
  4. ALEMTUZUMAB [Suspect]
     Active Substance: ALEMTUZUMAB
     Indication: Combined immunodeficiency
     Dosage: 0.2 MG/KG, QD
     Route: 065
  5. ALEMTUZUMAB [Suspect]
     Active Substance: ALEMTUZUMAB
     Indication: Bone marrow conditioning regimen
  6. ALEMTUZUMAB [Suspect]
     Active Substance: ALEMTUZUMAB
     Indication: Allogenic stem cell transplantation
  7. FLUDARABINE [Suspect]
     Active Substance: FLUDARABINE PHOSPHATE
     Indication: Combined immunodeficiency
     Dosage: 30 MG/M2, QD
     Route: 065
  8. FLUDARABINE [Suspect]
     Active Substance: FLUDARABINE PHOSPHATE
     Indication: Bone marrow conditioning regimen
  9. FLUDARABINE [Suspect]
     Active Substance: FLUDARABINE PHOSPHATE
     Indication: Allogenic stem cell transplantation

REACTIONS (6)
  - Product use in unapproved indication [Unknown]
  - Acute kidney injury [Recovered/Resolved]
  - Cytomegalovirus infection reactivation [Recovered/Resolved]
  - Gastrointestinal haemorrhage [Recovered/Resolved]
  - Norovirus infection [Recovered/Resolved]
  - Diarrhoea [Recovered/Resolved]
